FAERS Safety Report 5723838-7 (Version None)
Quarter: 2008Q2

REPORT INFORMATION
  Report Type: 
  Country: None (occurrence: None)
  Receive Date: 20080429
  Receipt Date: 20080429
  Transmission Date: 20081010
  Serious: No
  Sender: FDA-Public Use
  Company Number: None

PATIENT
  Age: 30 Year
  Sex: Female
  Weight: 67.1324 kg

DRUGS (1)
  1. FLUCONAZOLE [Suspect]
     Indication: VAGINAL INFECTION
     Dosage: 1 TABLET REPEAT AFTER 4 DAYS PO
     Route: 048
     Dates: start: 20080420, end: 20080420

REACTIONS (1)
  - THERAPEUTIC RESPONSE UNEXPECTED [None]
